FAERS Safety Report 26139839 (Version 1)
Quarter: 2025Q4

REPORT INFORMATION
  Report Type: Spontaneous
  Country: EU (occurrence: EU)
  Receive Date: 20251210
  Receipt Date: 20251210
  Transmission Date: 20260117
  Serious: Yes (Death)
  Sender: ASTELLAS
  Company Number: EU-ASTELLAS-2025-AER-068765

PATIENT
  Sex: Male

DRUGS (1)
  1. ZOLBETUXIMAB [Suspect]
     Active Substance: ZOLBETUXIMAB
     Indication: Product used for unknown indication
     Dosage: FIRST CYCLE
     Route: 065

REACTIONS (1)
  - Death [Fatal]
